FAERS Safety Report 8900634 (Version 1)
Quarter: 2012Q4

REPORT INFORMATION
  Report Type: 
  Country: JP (occurrence: JP)
  Receive Date: 20121109
  Receipt Date: 20121109
  Transmission Date: 20130627
  Serious: Yes (Hospitalization)
  Sender: FDA-Public Use
  Company Number: JP-ROCHE-1152405

PATIENT
  Age: 87 Year
  Sex: Male
  Weight: 45 kg

DRUGS (10)
  1. AVASTIN [Suspect]
     Indication: COLON CANCER METASTATIC
     Route: 041
     Dates: start: 20120426
  2. TOPOTECIN [Suspect]
     Indication: COLON CANCER METASTATIC
     Route: 041
     Dates: start: 20120426
  3. 5-FU [Suspect]
     Indication: COLON CANCER METASTATIC
     Route: 041
     Dates: start: 20120426
  4. LEVOFOLINATE [Concomitant]
     Indication: COLON CANCER METASTATIC
     Route: 041
     Dates: start: 20120426
  5. OMEPRAL [Concomitant]
     Indication: GASTRIC ULCER
     Route: 048
     Dates: start: 20100623
  6. SPIRIVA [Concomitant]
     Indication: EMPHYSEMA
     Route: 055
     Dates: start: 20110512
  7. GRANISETRON [Concomitant]
     Indication: PROPHYLAXIS OF NAUSEA AND VOMITING
     Route: 041
     Dates: start: 20111027
  8. DEXART [Concomitant]
     Indication: ALLERGY PROPHYLAXIS
     Route: 041
     Dates: start: 20111027
  9. MAGMITT [Concomitant]
     Indication: CONSTIPATION
     Route: 048
     Dates: start: 20111227
  10. HOKUNALIN [Concomitant]
     Indication: EMPHYSEMA
     Route: 062
     Dates: start: 20120414

REACTIONS (1)
  - Interstitial lung disease [Recovered/Resolved]
